FAERS Safety Report 10902680 (Version 2)
Quarter: 2015Q1

REPORT INFORMATION
  Report Type: Report from Study
  Country: US (occurrence: US)
  Receive Date: 20150310
  Receipt Date: 20150325
  Transmission Date: 20150721
  Serious: Yes (Death)
  Sender: FDA-Public Use
  Company Number: US-ACTELION-A-NJ2015-111650

PATIENT
  Age: 71 Year
  Sex: Male

DRUGS (6)
  1. VELETRI [Suspect]
     Active Substance: EPOPROSTENOL
     Indication: PULMONARY ARTERIAL HYPERTENSION
     Dosage: 16 NG/KG, PER MIN
     Route: 042
     Dates: start: 20141213, end: 20150225
  2. VELETRI [Suspect]
     Active Substance: EPOPROSTENOL
     Dosage: 6 NG/KG, PER MIN
     Route: 042
  3. TYVASO [Suspect]
     Active Substance: TREPROSTINIL
     Indication: PULMONARY ARTERIAL HYPERTENSION
     Dosage: 3-9 BREATHS, QID
     Route: 055
     Dates: start: 20150122
  4. ASPIRIN. [Concomitant]
     Active Substance: ASPIRIN
  5. SILDENAFIL. [Concomitant]
     Active Substance: SILDENAFIL
  6. VELETRI [Suspect]
     Active Substance: EPOPROSTENOL
     Dosage: 20 NG/KG, PER MIN
     Route: 042
     Dates: start: 20141213, end: 20150225

REACTIONS (14)
  - Oxygen consumption increased [Unknown]
  - Pain in jaw [Unknown]
  - General physical health deterioration [Unknown]
  - Speech disorder [Unknown]
  - Dyspnoea [Unknown]
  - Anxiety [Unknown]
  - Feeling abnormal [Unknown]
  - Blood pressure systolic decreased [Recovered/Resolved]
  - Ventilation perfusion mismatch [Unknown]
  - Vision blurred [Unknown]
  - Loss of consciousness [Unknown]
  - Death [Fatal]
  - Malaise [Unknown]
  - Oxygen saturation decreased [Unknown]

NARRATIVE: CASE EVENT DATE: 20150226
